FAERS Safety Report 19777404 (Version 2)
Quarter: 2022Q1

REPORT INFORMATION
  Report Type: Spontaneous
  Country: US (occurrence: US)
  Receive Date: 20210902
  Receipt Date: 20220217
  Transmission Date: 20220423
  Serious: Yes (Death, Life-Threatening, Hospitalization, Other)
  Sender: FDA-Public Use
  Company Number: US-MLMSERVICE-20210811-3046446-1

PATIENT
  Age: 31 Year
  Sex: Male
  Weight: 83 kg

DRUGS (2)
  1. ACETAMINOPHEN [Suspect]
     Active Substance: ACETAMINOPHEN
     Indication: Product used for unknown indication
     Dosage: 100 DOSAGE FORM (1 TOTAL)
     Route: 048
  2. FERROUS SULFATE [Suspect]
     Active Substance: FERROUS SULFATE
     Indication: Product used for unknown indication
     Dosage: 325 MILLIGRAM (TOTAL)
     Route: 048

REACTIONS (7)
  - Metabolic acidosis [Fatal]
  - Acute kidney injury [Fatal]
  - Drug level increased [Fatal]
  - Acute hepatic failure [Fatal]
  - Intentional overdose [Fatal]
  - Unresponsive to stimuli [Fatal]
  - Hypotension [Fatal]
